FAERS Safety Report 20553430 (Version 1)
Quarter: 2022Q1

REPORT INFORMATION
  Report Type: Spontaneous
  Country: JP (occurrence: JP)
  Receive Date: 20220304
  Receipt Date: 20220304
  Transmission Date: 20220424
  Serious: No
  Sender: FDA-Public Use
  Company Number: JP-MSD-M2022-07197

PATIENT
  Age: 61 Year
  Sex: Female

DRUGS (1)
  1. MOLNUPIRAVIR [Suspect]
     Active Substance: MOLNUPIRAVIR
     Indication: COVID-19 treatment
     Dosage: 200 MILLIGRAM, 8 TIMES A DAY
     Route: 048
     Dates: start: 20220218, end: 20220220

REACTIONS (3)
  - Rash [Unknown]
  - Urticaria [Unknown]
  - Product use issue [Unknown]

NARRATIVE: CASE EVENT DATE: 20220201
